FAERS Safety Report 7764319-9 (Version None)
Quarter: 2011Q3

REPORT INFORMATION
  Report Type: 
  Country: None (occurrence: None)
  Receive Date: 20110921
  Receipt Date: 20110915
  Transmission Date: 20111222
  Serious: Yes (Hospitalization)
  Sender: FDA-Public Use
  Company Number: DE-BRISTOL-MYERS SQUIBB COMPANY-15966021

PATIENT
  Age: 62 Year
  Sex: Male
  Weight: 83 kg

DRUGS (2)
  1. GEMCITABINE HYDROCHLORIDE [Suspect]
     Indication: NON-SMALL CELL LUNG CANCER
     Dosage: 1987MG,18JUL11-25JUL11(8DAYS),INTER ON 01AUG11,DOSE REDUCED RESTAT ON 08AUG11 WITH 800MG/M2
     Route: 042
     Dates: start: 20110718
  2. CETUXIMAB [Suspect]
     Indication: NON-SMALL CELL LUNG CANCER
     Dosage: 250MG/M2,25JUL11-UNK,795MG,INTER ON 01AUG11,DOSE REDUCED RESTAT ON 08AUG11
     Route: 042
     Dates: start: 20110718

REACTIONS (4)
  - BRONCHITIS [None]
  - THROMBOCYTOPENIA [None]
  - LEUKOPENIA [None]
  - FEBRILE NEUTROPENIA [None]
